FAERS Safety Report 5776284-4 (Version None)
Quarter: 2008Q2

REPORT INFORMATION
  Report Type: 
  Country: None (occurrence: None)
  Receive Date: 20080617
  Receipt Date: 20080617
  Transmission Date: 20081010
  Serious: Yes (Hospitalization)
  Sender: FDA-Public Use
  Company Number: None

PATIENT
  Age: 62 Year
  Sex: Female
  Weight: 71 kg

DRUGS (14)
  1. OXYCODONE HCL [Suspect]
     Indication: PAIN
     Dosage: 5-10 MG Q6H PRN PO  CHRONIC
     Route: 048
  2. AMITRIPTYLINE HCL [Suspect]
     Indication: PAIN
     Dosage: 100MG QHS PO CHRONIC
     Route: 048
  3. PROZAC [Concomitant]
  4. EVISTA [Concomitant]
  5. ASPIRIN [Concomitant]
  6. PEPCID [Concomitant]
  7. AMAGRELIDE [Concomitant]
  8. ELAVIL [Concomitant]
  9. NEURONTIN [Concomitant]
  10. OXYCODONE HCL [Concomitant]
  11. FLEXERIL [Concomitant]
  12. LISINOPRIL AND HYDROCHLOROTHIAZIDE [Concomitant]
  13. LIBRIUM [Concomitant]
  14. ALBUTEROL [Concomitant]

REACTIONS (5)
  - CONFUSIONAL STATE [None]
  - INFECTED SKIN ULCER [None]
  - MENTAL STATUS CHANGES [None]
  - PAIN [None]
  - SKIN ULCER [None]
